FAERS Safety Report 8992016 (Version 2)
Quarter: 2013Q2

REPORT INFORMATION
  Report Type: Spontaneous
  Country: PT (occurrence: PT)
  Receive Date: 20121231
  Receipt Date: 20130402
  Transmission Date: 20140414
  Serious: Yes (Other)
  Sender: FDA-Public Use
  Company Number: PHHY2012PT120918

PATIENT
  Age: 50 Year
  Sex: Female
  Weight: 70 kg

DRUGS (6)
  1. ESTRADOT [Suspect]
     Indication: HORMONE REPLACEMENT THERAPY
     Route: 062
     Dates: start: 20121215, end: 20121216
  2. NEBILET [Concomitant]
     Indication: HYPERTENSION
     Dosage: UNK UKN, UNK
     Route: 048
  3. CLARITINE [Concomitant]
     Indication: RHINITIS
     Route: 048
  4. BILOBAN [Concomitant]
     Dosage: UNK UKN, UNK
     Route: 048
  5. NIMESULIDA [Concomitant]
     Dosage: UNK UKN, UNK
     Route: 048
  6. NASOMET [Concomitant]
     Indication: RHINITIS
     Dosage: UNK UKN, UNK
     Route: 045

REACTIONS (1)
  - Haemorrhage urinary tract [Recovered/Resolved]
